FAERS Safety Report 5837961-X (Version None)
Quarter: 2008Q3

REPORT INFORMATION
  Report Type: 
  Country: None (occurrence: None)
  Receive Date: 20080808
  Receipt Date: 20071220
  Transmission Date: 20090109
  Serious: No
  Sender: FDA-Public Use
  Company Number: A0700011A

PATIENT
  Age: 37 Year
  Sex: Male

DRUGS (2)
  1. PAROXETINE HCL [Suspect]
     Dosage: 30MG PER DAY
     Route: 048
     Dates: start: 20071212
  2. NO CONCURRENT MEDICATION [Concomitant]

REACTIONS (1)
  - LIBIDO DECREASED [None]
